FAERS Safety Report 19283009 (Version 7)
Quarter: 2021Q3

REPORT INFORMATION
  Report Type: Spontaneous
  Country: AE (occurrence: AE)
  Receive Date: 20210521
  Receipt Date: 20210721
  Transmission Date: 20211014
  Serious: Yes (Hospitalization, Other)
  Sender: FDA-Public Use
  Company Number: AE-SA-2021SA167249

PATIENT
  Age: 15 Year
  Sex: Female
  Weight: 42.8 kg

DRUGS (4)
  1. MAXITROL [Concomitant]
     Active Substance: DEXAMETHASONE\NEOMYCIN SULFATE\POLYMYXIN B SULFATE
     Dosage: UNK UNK, TID
  2. DUPIXENT [Suspect]
     Active Substance: DUPILUMAB
     Indication: DERMATITIS ATOPIC
     Dosage: 200 MG
     Dates: start: 202008, end: 20210518
  3. ARTELAC ADVANCED [Concomitant]
     Dosage: UNK UNK, QID
  4. MAXITROL [Concomitant]
     Active Substance: DEXAMETHASONE\NEOMYCIN SULFATE\POLYMYXIN B SULFATE
     Dosage: UNK UNK, QD

REACTIONS (4)
  - Visual impairment [Recovered/Resolved]
  - Cataract subcapsular [Unknown]
  - Ocular hyperaemia [Unknown]
  - Cataract [Unknown]
